FAERS Safety Report 9797945 (Version 1)
Quarter: 2014Q1

REPORT INFORMATION
  Report Type: Report from Study
  Country: BR (occurrence: BR)
  Receive Date: 20140106
  Receipt Date: 20140106
  Transmission Date: 20141002
  Serious: Yes (Hospitalization)
  Sender: FDA-Public Use
  Company Number: PHHY2014BR000608

PATIENT
  Age: 10 Year
  Sex: Female
  Weight: 29 kg

DRUGS (2)
  1. EXJADE [Suspect]
     Indication: SERUM FERRITIN INCREASED
     Dosage: 500 MG, UNK
  2. EXJADE [Suspect]
     Dosage: 750 MG (1 AND A HALF DF), UNK
     Dates: start: 20131217

REACTIONS (2)
  - Meningitis [Recovered/Resolved]
  - Serum ferritin increased [Recovered/Resolved]
